FAERS Safety Report 8156532 (Version 3)
Quarter: 2013Q2

REPORT INFORMATION
  Report Type: Spontaneous
  Country: US (occurrence: US)
  Receive Date: 20110926
  Receipt Date: 20130418
  Transmission Date: 20140414
  Serious: Yes (Hospitalization)
  Sender: FDA-Public Use
  Company Number: US-BAYER-2011-085720

PATIENT
  Age: 27 Year
  Sex: Female
  Weight: 67 kg

DRUGS (10)
  1. YASMIN [Suspect]
     Indication: ORAL CONTRACEPTION
     Dosage: UNK
     Dates: start: 20060701, end: 20090921
  2. YASMIN [Suspect]
     Indication: PREMENSTRUAL SYNDROME
  3. Z-PAK [Concomitant]
     Indication: ANTIBIOTIC THERAPY
     Dosage: UNK
     Dates: start: 2009
  4. AZITHROMYCIN [Concomitant]
     Indication: ANTIBIOTIC THERAPY
     Dosage: UNK
     Dates: start: 2009
  5. ADVIL [Concomitant]
     Dosage: UNK UNK, PRN
  6. TYLENOL [Concomitant]
     Dosage: UNK UNK, PRN
  7. XANAX [Concomitant]
  8. MECLIZINE [Concomitant]
     Dosage: 12.5 MG, UNK
     Dates: start: 20090611
  9. FEXOFENADINE [Concomitant]
     Dosage: 180 MG, UNK
     Route: 048
     Dates: start: 20090602
  10. CHLORHEXIDINE [Concomitant]
     Dosage: 0.128, RINSE
     Dates: start: 20090721

REACTIONS (8)
  - Superior sagittal sinus thrombosis [Recovered/Resolved]
  - Injury [Recovered/Resolved]
  - Pain [Recovered/Resolved]
  - Mental disorder [None]
  - Hypoaesthesia [Recovered/Resolved]
  - Hypoaesthesia [Recovered/Resolved]
  - VIIth nerve paralysis [None]
  - Central nervous system lesion [Recovered/Resolved]
